FAERS Safety Report 6285093-1 (Version None)
Quarter: 2009Q3

REPORT INFORMATION
  Report Type: 
  Country: None (occurrence: None)
  Receive Date: 20090727
  Receipt Date: 20090716
  Transmission Date: 20100115
  Serious: Yes (Hospitalization, Disabling, Other)
  Sender: FDA-Public Use
  Company Number: US-MERCK-0902USA00398

PATIENT
  Age: 65 Year
  Sex: Female
  Weight: 80 kg

DRUGS (2)
  1. FOSAMAX [Suspect]
     Indication: OSTEOPENIA
     Route: 048
     Dates: start: 20010101, end: 20060101
  2. LEVOXYL [Concomitant]
     Indication: THYROID DISORDER
     Route: 065
     Dates: start: 19910101

REACTIONS (23)
  - ANGINA PECTORIS [None]
  - ANGIOPATHY [None]
  - ARTERIAL OCCLUSIVE DISEASE [None]
  - BUNDLE BRANCH BLOCK LEFT [None]
  - CATARACT [None]
  - CELLULITIS [None]
  - CORONARY ARTERY DISEASE [None]
  - DIVERTICULUM [None]
  - DYSLIPIDAEMIA [None]
  - DYSPEPSIA [None]
  - GLUCOSE TOLERANCE IMPAIRED [None]
  - GOITRE [None]
  - HAEMATURIA [None]
  - HYPERAEMIA [None]
  - JAW DISORDER [None]
  - MITRAL VALVE DISEASE [None]
  - MITRAL VALVE PROLAPSE [None]
  - OSTEOMYELITIS [None]
  - OSTEONECROSIS [None]
  - RESTLESS LEGS SYNDROME [None]
  - SOFT TISSUE DISORDER [None]
  - TEMPOROMANDIBULAR JOINT SYNDROME [None]
  - TOOTH ABSCESS [None]
